FAERS Safety Report 25014869 (Version 3)
Quarter: 2025Q1

REPORT INFORMATION
  Report Type: Spontaneous
  Country: IT (occurrence: None)
  Receive Date: 20250226
  Receipt Date: 20250311
  Transmission Date: 20250409
  Serious: Yes (Other)
  Sender: INCYTE
  Company Number: IT-002147023-NVSC2025IT031170

PATIENT
  Age: 17 Year

DRUGS (3)
  1. RUXOLITINIB [Suspect]
     Active Substance: RUXOLITINIB
     Indication: Acute graft versus host disease in skin
     Route: 065
  2. RUXOLITINIB [Suspect]
     Active Substance: RUXOLITINIB
     Route: 065
  3. ISAVUCONAZOLE [Concomitant]
     Active Substance: ISAVUCONAZOLE
     Indication: Product used for unknown indication
     Route: 065

REACTIONS (5)
  - Cytomegalovirus infection [Unknown]
  - Thrombocytopenia [Unknown]
  - Leukopenia [Unknown]
  - Off label use [Unknown]
  - Therapy partial responder [Unknown]
